FAERS Safety Report 25008690 (Version 1)
Quarter: 2025Q1

REPORT INFORMATION
  Report Type: Spontaneous
  Country: US (occurrence: None)
  Receive Date: 20250224
  Receipt Date: 20250224
  Transmission Date: 20250409
  Serious: Yes (unspecified)
  Sender: FDA-CTU
  Company Number: None

PATIENT
  Age: 78 Year
  Sex: Male
  Weight: 97.65 kg

DRUGS (1)
  1. LEFLUNOMIDE [Suspect]
     Active Substance: LEFLUNOMIDE
     Indication: Arthritis
     Dosage: FREQUENCY : DAILY;?
     Route: 048
     Dates: start: 20250120, end: 20250210

REACTIONS (2)
  - Visual impairment [None]
  - Rash [None]

NARRATIVE: CASE EVENT DATE: 20250205
